FAERS Safety Report 25685023 (Version 5)
Quarter: 2025Q4

REPORT INFORMATION
  Report Type: Spontaneous
  Country: US (occurrence: US)
  Receive Date: 20250815
  Receipt Date: 20251029
  Transmission Date: 20260118
  Serious: No
  Sender: LUPIN
  Company Number: US-LUPIN PHARMACEUTICALS INC.-2025-07363

PATIENT
  Age: 55 Year

DRUGS (1)
  1. ALBUTEROL SULFATE [Suspect]
     Active Substance: ALBUTEROL SULFATE
     Indication: Asthma
     Dosage: PRN, SHE TOOK THE INHALER DOSE DEPENDING ON THE WEATHER. IF IT^S HUMID, SHE USUALLY NEEDS IT 2-3 TIMES A DAY. SHE USUALLY TAKES IT TWICE IN THE MORNING

REACTIONS (4)
  - Dyspnoea [Unknown]
  - Drug dose omission by device [Unknown]
  - Wrong technique in product usage process [Unknown]
  - Device deposit issue [Unknown]
